FAERS Safety Report 17313396 (Version 2)
Quarter: 2020Q1

REPORT INFORMATION
  Report Type: Report from Study
  Country: None (occurrence: US)
  Receive Date: 20200124
  Receipt Date: 20200128
  Transmission Date: 20200409
  Serious: Yes (Death)
  Sender: FDA-Public Use
  Company Number: US-ABBVIE-20K-163-3248091-00

PATIENT
  Age: 72 Year
  Sex: Male

DRUGS (5)
  1. VENCLEXTA [Suspect]
     Active Substance: VENETOCLAX
     Dosage: TWO TABLET DAILY FOR SEVEN DAY
     Route: 048
     Dates: start: 20190710, end: 20190716
  2. ADVIL [Concomitant]
     Active Substance: IBUPROFEN
     Indication: PRODUCT USED FOR UNKNOWN INDICATION
  3. VENCLEXTA [Suspect]
     Active Substance: VENETOCLAX
     Dosage: 4 TABLET DAILY
     Route: 048
     Dates: start: 20190801, end: 20200116
  4. VENCLEXTA [Suspect]
     Active Substance: VENETOCLAX
     Route: 048
     Dates: start: 201907, end: 20190731
  5. VENCLEXTA [Suspect]
     Active Substance: VENETOCLAX
     Indication: ACUTE LEUKAEMIA
     Dosage: ONE TABLET DAILY FOR SEVEN DAYS
     Route: 048
     Dates: start: 20190703, end: 20190709

REACTIONS (1)
  - Death [Fatal]

NARRATIVE: CASE EVENT DATE: 20200116
